FAERS Safety Report 24370209 (Version 1)
Quarter: 2024Q3

REPORT INFORMATION
  Report Type: Report from Study
  Country: US (occurrence: US)
  Receive Date: 20240927
  Receipt Date: 20240927
  Transmission Date: 20241017
  Serious: No
  Sender: ROCHE
  Company Number: US-ROCHE-3543097

PATIENT
  Age: 48 Year
  Sex: Male

DRUGS (6)
  1. LUCENTIS [Suspect]
     Active Substance: RANIBIZUMAB
     Indication: Macular oedema
     Dosage: 1S DOSE OF OU: 28/FEB/2024, 2ND DOSE: 24/APR/2024.? FREQUENCY TEXT:TBD
     Route: 050
  2. LUCENTIS [Suspect]
     Active Substance: RANIBIZUMAB
     Indication: Diabetic retinal oedema
     Route: 050
  3. LUCENTIS [Suspect]
     Active Substance: RANIBIZUMAB
     Route: 050
  4. ARTIFICIAL TEARS [CARMELLOSE SODIUM] [Concomitant]
  5. AKTEN [Concomitant]
     Active Substance: LIDOCAINE HYDROCHLORIDE
  6. PROPARACAINE [Concomitant]
     Active Substance: PROPARACAINE

REACTIONS (3)
  - Pain [Unknown]
  - Ocular discomfort [Unknown]
  - Off label use [Unknown]
